FAERS Safety Report 7318689-6 (Version None)
Quarter: 2011Q1

REPORT INFORMATION
  Report Type: 
  Country: None (occurrence: None)
  Receive Date: 20110214
  Receipt Date: 20110201
  Transmission Date: 20110831
  Serious: Yes (Death)
  Sender: FDA-Public Use
  Company Number: 026680

PATIENT

DRUGS (1)
  1. ROTIGOTINE (NEUPRO) [Suspect]

REACTIONS (1)
  - INCORRECT STORAGE OF DRUG [None]
